FAERS Safety Report 13338818 (Version 1)
Quarter: 2017Q1

REPORT INFORMATION
  Report Type: Spontaneous
  Country: US (occurrence: US)
  Receive Date: 20170315
  Receipt Date: 20170315
  Transmission Date: 20170428
  Serious: Yes (Death, Life-Threatening, Hospitalization, Other)
  Sender: FDA-Public Use
  Company Number: US-GILEAD-2017-0261889

PATIENT
  Age: 53 Year
  Sex: Male
  Weight: 127 kg

DRUGS (8)
  1. EPCLUSA [Suspect]
     Active Substance: SOFOSBUVIR\VELPATASVIR
     Indication: CHRONIC HEPATITIS C
     Dosage: 400 MG, UNK
     Route: 048
     Dates: start: 20170131, end: 201702
  2. LACTULOSE. [Concomitant]
     Active Substance: LACTULOSE
     Indication: HEPATIC ENCEPHALOPATHY
     Dosage: UNK
     Dates: start: 2010
  3. CIPROFLOXACIN. [Concomitant]
     Active Substance: CIPROFLOXACIN
     Indication: PERITONITIS BACTERIAL
     Dosage: UNK
     Dates: start: 2010
  4. TRAZODONE [Concomitant]
     Active Substance: TRAZODONE HYDROCHLORIDE
     Indication: SOMNOLENCE
     Dosage: UNK
     Dates: start: 2016
  5. RIBAVIRIN. [Suspect]
     Active Substance: RIBAVIRIN
     Indication: CHRONIC HEPATITIS C
     Dosage: 800 MG, UNK
     Route: 048
     Dates: start: 20170131, end: 201702
  6. MIDODRINE [Concomitant]
     Active Substance: MIDODRINE
     Indication: ACUTE KIDNEY INJURY
     Dosage: UNK
     Dates: start: 2010
  7. RIFAXIMIN [Concomitant]
     Active Substance: RIFAXIMIN
     Indication: HEPATIC ENCEPHALOPATHY
     Dosage: UNK
     Dates: start: 2010
  8. ONDANSETRON [Concomitant]
     Active Substance: ONDANSETRON
     Indication: NAUSEA
     Dosage: UNK
     Dates: start: 2010

REACTIONS (5)
  - Hepatorenal syndrome [Unknown]
  - Hepatic failure [Unknown]
  - Acute kidney injury [Unknown]
  - Upper limb fracture [Unknown]
  - Hyperbilirubinaemia [Fatal]

NARRATIVE: CASE EVENT DATE: 20170208
